FAERS Safety Report 5508607-5 (Version None)
Quarter: 2007Q4

REPORT INFORMATION
  Report Type: 
  Country: None (occurrence: None)
  Receive Date: 20071031
  Receipt Date: 20070725
  Transmission Date: 20080405
  Serious: No
  Sender: FDA-Public Use
  Company Number: 2007PV033189

PATIENT
  Age: 73 Year
  Sex: Female

DRUGS (3)
  1. SYMLIN [Suspect]
     Indication: TYPE 2 DIABETES MELLITUS
     Dosage: 120 MCG;TID;SC : 60 MCG;TID;SC
     Route: 058
     Dates: start: 20060701, end: 20060801
  2. SYMLIN [Suspect]
     Indication: TYPE 2 DIABETES MELLITUS
     Dosage: 120 MCG;TID;SC : 60 MCG;TID;SC
     Route: 058
     Dates: start: 20060801
  3. LOMOTIL [Concomitant]

REACTIONS (1)
  - DIARRHOEA [None]
